FAERS Safety Report 6527983-8 (Version None)
Quarter: 2010Q1

REPORT INFORMATION
  Report Type: 
  Country: None (occurrence: None)
  Receive Date: 20100105
  Receipt Date: 20100105
  Transmission Date: 20100710
  Serious: No
  Sender: FDA-Public Use
  Company Number: None

PATIENT
  Age: 37 Year
  Sex: Female
  Weight: 46.2669 kg

DRUGS (2)
  1. PREDNISONE [Suspect]
     Indication: ABDOMINAL DISTENSION
     Dosage: 20 MG ONCE/DAY PO
     Route: 048
     Dates: start: 20091217, end: 20091226
  2. PREDNISONE [Suspect]
     Indication: ABDOMINAL DISTENSION
     Dosage: 10 MG ONCE/DAY PO
     Route: 048
     Dates: start: 20091227, end: 20091231

REACTIONS (7)
  - ABDOMINAL DISTENSION [None]
  - CHEST PAIN [None]
  - HEADACHE [None]
  - HEART RATE DECREASED [None]
  - HEART SOUNDS ABNORMAL [None]
  - HYPOTENSION [None]
  - INSOMNIA [None]
